FAERS Safety Report 16967511 (Version 2)
Quarter: 2020Q3

REPORT INFORMATION
  Report Type: Report from Study
  Country: AU (occurrence: AU)
  Receive Date: 20191028
  Receipt Date: 20200727
  Transmission Date: 20201102
  Serious: Yes (Death, Life-Threatening, Hospitalization, Other)
  Sender: FDA-Public Use
  Company Number: PHHY2019AU198193

PATIENT
  Age: 1 Year
  Sex: Male
  Weight: 8 kg

DRUGS (1)
  1. TRAMETINIB [Suspect]
     Active Substance: TRAMETINIB
     Indication: NEUROFIBROMA
     Dosage: 0.032 MG/KG, QD
     Route: 048
     Dates: start: 20190315, end: 20190817

REACTIONS (9)
  - Cardio-respiratory arrest [Unknown]
  - Hypoxic-ischaemic encephalopathy [Fatal]
  - Multiple organ dysfunction syndrome [Not Recovered/Not Resolved]
  - Malaise [Unknown]
  - Central nervous system haemorrhage [Unknown]
  - Septic shock [Fatal]
  - Parainfluenzae virus infection [Unknown]
  - Hypotension [Unknown]
  - Pyrexia [Unknown]

NARRATIVE: CASE EVENT DATE: 20190819
